FAERS Safety Report 14578527 (Version 1)
Quarter: 2018Q1

REPORT INFORMATION
  Report Type: Spontaneous
  Country: SK (occurrence: SK)
  Receive Date: 20180227
  Receipt Date: 20180227
  Transmission Date: 20180509
  Serious: No
  Sender: FDA-Public Use
  Company Number: None

PATIENT
  Age: 25 Year
  Sex: Female
  Weight: 61 kg

DRUGS (5)
  1. MINT TEA [Concomitant]
  2. FIXIT [Concomitant]
  3. LUIVAC [Concomitant]
  4. NASONEX [Concomitant]
     Active Substance: MOMETASONE FUROATE
  5. ORALAIR [Suspect]
     Active Substance: ANTHOXANTHUM ODORATUM POLLEN\DACTYLIS GLOMERATA POLLEN\LOLIUM PERENNE POLLEN\PHLEUM PRATENSE POLLEN\POA PRATENSIS POLLEN
     Indication: SINUSITIS
     Dosage: ?          QUANTITY:1 TABLET(S);?
     Route: 060
     Dates: start: 20171222

REACTIONS (3)
  - Abdominal pain upper [None]
  - Vertigo [None]
  - Erythema [None]

NARRATIVE: CASE EVENT DATE: 20180101
